FAERS Safety Report 5754276-9 (Version None)
Quarter: 2008Q2

REPORT INFORMATION
  Report Type: 
  Country: None (occurrence: None)
  Receive Date: 20080530
  Receipt Date: 20080521
  Transmission Date: 20081010
  Serious: Yes (Other)
  Sender: FDA-Public Use
  Company Number: US-AMGEN-STX277845

PATIENT
  Sex: Male
  Weight: 87.6 kg

DRUGS (3)
  1. ENBREL [Suspect]
     Indication: PSORIATIC ARTHROPATHY
     Route: 065
     Dates: start: 20060101
  2. METOPROLOL TARTRATE [Concomitant]
     Route: 048
  3. PROAMATINE [Concomitant]

REACTIONS (9)
  - ARTHRITIS [None]
  - AUTOANTIBODY POSITIVE [None]
  - BRAIN CONTUSION [None]
  - FALL [None]
  - SKULL FRACTURED BASE [None]
  - SOMNOLENCE [None]
  - SUBARACHNOID HAEMORRHAGE [None]
  - SYNCOPE [None]
  - THYROID NEOPLASM [None]
